FAERS Safety Report 5088211-6 (Version None)
Quarter: 2006Q3

REPORT INFORMATION
  Report Type: 
  Country: None (occurrence: None)
  Receive Date: 20060821
  Receipt Date: 20060810
  Transmission Date: 20061208
  Serious: Yes (Hospitalization)
  Sender: FDA-Public Use
  Company Number: 2006097440

PATIENT
  Age: 84 Year
  Sex: Female
  Weight: 42.1845 kg

DRUGS (5)
  1. ACTIFED COLD AND SINUS CAPLETS (PARACETAMOL, PSEUDOEPHEDRINE, CHLORPHE [Suspect]
     Indication: HYPERSENSITIVITY
     Dosage: 2 CAPLETS ONCE A DAY,ORAL
     Route: 048
     Dates: start: 20060701, end: 20060701
  2. VITAMINS [Concomitant]
  3. ESTRADIOL INJ [Concomitant]
  4. DRUG, UNSPECIFIED [Concomitant]
  5. PROPRANOLOL HYDROCHLORIDE [Concomitant]

REACTIONS (3)
  - BREAST PAIN [None]
  - DYSPNOEA [None]
  - PALPITATIONS [None]
